FAERS Safety Report 24936444 (Version 7)
Quarter: 2025Q4

REPORT INFORMATION
  Report Type: Spontaneous
  Country: US (occurrence: US)
  Receive Date: 20250206
  Receipt Date: 20251126
  Transmission Date: 20260117
  Serious: Yes (Other)
  Sender: TRAVERE THERAPEUTICS
  Company Number: US-TRAVERE-2025TVT00110

PATIENT
  Age: 56 Year
  Sex: Male
  Weight: 101.6 kg

DRUGS (8)
  1. FILSPARI [Suspect]
     Active Substance: SPARSENTAN
     Indication: Haematuria
     Route: 048
     Dates: start: 20240724, end: 20250117
  2. FILSPARI [Suspect]
     Active Substance: SPARSENTAN
     Indication: IgA nephropathy
     Route: 048
     Dates: start: 20240806
  3. FILSPARI [Suspect]
     Active Substance: SPARSENTAN
     Route: 048
     Dates: start: 20250919
  4. ATORVASTATIN [Concomitant]
     Active Substance: ATORVASTATIN
  5. TARPEYO [Concomitant]
     Active Substance: BUDESONIDE
  6. AMLODIPINE [Concomitant]
     Active Substance: AMLODIPINE BESYLATE
  7. MONTELUKAST [Concomitant]
     Active Substance: MONTELUKAST
  8. OXYBUTYNIN [Concomitant]
     Active Substance: OXYBUTYNIN

REACTIONS (5)
  - Alanine aminotransferase increased [Recovered/Resolved]
  - Aspartate aminotransferase increased [Recovered/Resolved]
  - Fatigue [Unknown]
  - Blood pressure increased [Unknown]
  - Proteinuria [Unknown]

NARRATIVE: CASE EVENT DATE: 20241223
